FAERS Safety Report 14964810 (Version 1)
Quarter: 2018Q2

REPORT INFORMATION
  Report Type: Spontaneous
  Country: US (occurrence: US)
  Receive Date: 20180510
  Receipt Date: 20180510
  Transmission Date: 20180711
  Serious: Yes (Disabling)
  Sender: FDA-Public Use
  Company Number: None

PATIENT
  Age: 56 Year
  Sex: Male
  Weight: 128.25 kg

DRUGS (15)
  1. VASARTAN [Concomitant]
  2. FISH OIL [Concomitant]
     Active Substance: FISH OIL
  3. TURMERIC CURCUMIN [Concomitant]
     Active Substance: HERBALS\TURMERIC
  4. VITAMIN D [Concomitant]
     Active Substance: CHOLECALCIFEROL
  5. COSENTY [Concomitant]
  6. PREDNISONE. [Concomitant]
     Active Substance: PREDNISONE
  7. CARVEDILOL. [Concomitant]
     Active Substance: CARVEDILOL
  8. VITAMIN D3 [Concomitant]
     Active Substance: CHOLECALCIFEROL
  9. VITAMIN E [Concomitant]
     Active Substance: .ALPHA.-TOCOPHEROL
  10. HUMIRA [Suspect]
     Active Substance: ADALIMUMAB
     Indication: PSORIATIC ARTHROPATHY
     Dosage: ?          QUANTITY:1 INJECTION(S);OTHER FREQUENCY:EVERY OTHER WEEK;?
     Route: 058
     Dates: start: 20141008, end: 20180208
  11. LEFLUNOMIDE. [Concomitant]
     Active Substance: LEFLUNOMIDE
  12. NIACIN. [Concomitant]
     Active Substance: NIACIN
  13. FLAXSEED [Concomitant]
     Active Substance: FLAX SEED
  14. GARLIC. [Concomitant]
     Active Substance: GARLIC
  15. BABY ASPIRIN [Concomitant]
     Active Substance: ASPIRIN

REACTIONS (8)
  - Impaired work ability [None]
  - Rash [None]
  - Frustration tolerance decreased [None]
  - Disease recurrence [None]
  - Skin fissures [None]
  - Nail disorder [None]
  - Skin haemorrhage [None]
  - Nail infection [None]

NARRATIVE: CASE EVENT DATE: 20180208
